FAERS Safety Report 6469431-2 (Version None)
Quarter: 2009Q4

REPORT INFORMATION
  Report Type: 
  Country: None (occurrence: None)
  Receive Date: 20091203
  Receipt Date: 20091120
  Transmission Date: 20100525
  Serious: Yes (Hospitalization)
  Sender: FDA-Public Use
  Company Number: JP-AMGEN-US368414

PATIENT
  Sex: Male

DRUGS (10)
  1. ENBREL [Suspect]
     Indication: RHEUMATOID ARTHRITIS
     Dosage: 25 MG 2X/WEEK OF LYOPHILIZED DOSE FORM
     Route: 058
     Dates: start: 20080101
  2. ENBREL [Suspect]
     Dosage: 50 MG WEEKLY OF SOLUTION FOR INJECTION
     Route: 058
  3. MOBIC [Concomitant]
     Route: 048
     Dates: start: 20080101
  4. PREDONINE [Concomitant]
     Dosage: UNKNOWN
     Dates: start: 20080101
  5. FOLIAMIN [Concomitant]
     Dosage: UNKNOWN
     Dates: start: 20070419
  6. PRIMPERAN TAB [Concomitant]
     Route: 048
     Dates: start: 20080101
  7. DEPAS [Concomitant]
     Dosage: UNKNOWN
     Dates: start: 20080101
  8. METOLATE [Concomitant]
     Dosage: 2 MG, FREQUENCY UNKNOWN
     Route: 048
     Dates: start: 20070419
  9. ISCOTIN [Concomitant]
     Route: 048
     Dates: start: 20080101
  10. CYTOTEC [Concomitant]
     Route: 048
     Dates: start: 20080101

REACTIONS (6)
  - C-REACTIVE PROTEIN INCREASED [None]
  - IMMUNOSUPPRESSION [None]
  - LUNG INFECTION [None]
  - PLEURAL EFFUSION [None]
  - PLEURISY [None]
  - PYREXIA [None]
